FAERS Safety Report 16889488 (Version 1)
Quarter: 2019Q4

REPORT INFORMATION
  Report Type: Spontaneous
  Country: US (occurrence: US)
  Receive Date: 20191007
  Receipt Date: 20191007
  Transmission Date: 20200122
  Serious: No
  Sender: FDA-Public Use
  Company Number: US-AUROBINDO-AUR-APL-2019-040580

PATIENT

DRUGS (1)
  1. OMEPRAZOLE DELAYED-RELEASE CAPSULES USP 20MG [Suspect]
     Active Substance: OMEPRAZOLE
     Indication: GASTROOESOPHAGEAL REFLUX DISEASE
     Dosage: 20 MILLIGRAM, ONCE A DAY, FOR 3 DAYS
     Route: 048
     Dates: start: 201906, end: 20190701

REACTIONS (3)
  - Dyspepsia [Recovered/Resolved]
  - Drug ineffective [Unknown]
  - Product substitution issue [Unknown]
